FAERS Safety Report 22597170 (Version 1)
Quarter: 2023Q2

REPORT INFORMATION
  Report Type: Report from Study
  Country: US (occurrence: US)
  Receive Date: 20230614
  Receipt Date: 20230614
  Transmission Date: 20230722
  Serious: Yes (Other)
  Sender: FDA-Public Use
  Company Number: US-ABBVIE-4299313

PATIENT
  Sex: Male
  Weight: 103 kg

DRUGS (12)
  1. HUMIRA [Suspect]
     Active Substance: ADALIMUMAB
     Indication: Rheumatoid arthritis
     Dosage: REFILLED, CITRATE FREE, WEEK IN THE ABDOMEN OR THIGH (ROTATE SITES)
     Route: 058
     Dates: start: 20220902, end: 20220926
  2. HUMIRA [Suspect]
     Active Substance: ADALIMUMAB
     Indication: Rheumatoid arthritis
     Dosage: CITRATE FREE
     Route: 058
     Dates: start: 20211201, end: 20220801
  3. acetaminophen -codeine [Concomitant]
     Indication: Product used for unknown indication
     Dosage: 300 MG- 30 MG?FREQUENCY TEXT: TAKE 1 TABLET BY EVERY 6 HOURS AS NEEDED
     Route: 048
  4. DILTIAZEM [Concomitant]
     Active Substance: DILTIAZEM
     Indication: Product used for unknown indication
     Route: 048
     Dates: start: 20220302
  5. OMEPRAZOLE [Concomitant]
     Active Substance: OMEPRAZOLE
     Indication: Product used for unknown indication
     Route: 048
     Dates: start: 20220302
  6. TRIAMTERENE AND HYDROCHLOROTHIAZIDE [Concomitant]
     Active Substance: HYDROCHLOROTHIAZIDE\TRIAMTERENE
     Indication: Product used for unknown indication
     Dosage: 37.5MG-25MG
     Route: 048
     Dates: start: 20210817
  7. WELLBUTRIN [Concomitant]
     Active Substance: BUPROPION HYDROCHLORIDE
     Indication: Product used for unknown indication
     Route: 048
     Dates: start: 20220906, end: 20220926
  8. GABAPENTIN [Concomitant]
     Active Substance: GABAPENTIN
     Indication: Product used for unknown indication
     Dosage: FREQUENCY TEXT: TAKE 1 CAPSULE BY 3 TIMES EVERY DAY
     Route: 048
     Dates: start: 20210817, end: 20210817
  9. GABAPENTIN [Concomitant]
     Active Substance: GABAPENTIN
     Indication: Product used for unknown indication
     Dosage: FREQUENCY TEXT: TAKE 1 CAPSULE BY 2 TIMES EVERY DAY
     Route: 048
     Dates: start: 20210817
  10. LISINOPRIL [Concomitant]
     Active Substance: LISINOPRIL
     Indication: Product used for unknown indication
     Route: 048
     Dates: start: 20210817
  11. PREDNISONE [Concomitant]
     Active Substance: PREDNISONE
     Indication: Product used for unknown indication
     Route: 048
     Dates: start: 20220902, end: 20220926
  12. WELLBUTRIN [Concomitant]
     Active Substance: BUPROPION HYDROCHLORIDE
     Indication: Product used for unknown indication

REACTIONS (7)
  - Soft tissue mass [Unknown]
  - Basal cell carcinoma [Unknown]
  - Rash [Recovering/Resolving]
  - Pain [Unknown]
  - Musculoskeletal pain [Unknown]
  - Nightmare [Unknown]
  - Joint swelling [Unknown]
